FAERS Safety Report 18496455 (Version 2)
Quarter: 2020Q4

REPORT INFORMATION
  Report Type: Report from Study
  Country: US (occurrence: US)
  Receive Date: 20201112
  Receipt Date: 20201114
  Transmission Date: 20210114
  Serious: No
  Sender: FDA-Public Use
  Company Number: NVSC2020US303166

PATIENT
  Sex: Female

DRUGS (2)
  1. ENTRESTO [Suspect]
     Active Substance: SACUBITRIL\VALSARTAN
     Route: 048
     Dates: start: 202010
  2. ENTRESTO [Suspect]
     Active Substance: SACUBITRIL\VALSARTAN
     Indication: CARDIAC FAILURE
     Dosage: 50 MG(24/26MG), QD
     Route: 048
     Dates: start: 2020

REACTIONS (3)
  - Headache [Not Recovered/Not Resolved]
  - Incorrect dose administered [Unknown]
  - Underdose [Unknown]

NARRATIVE: CASE EVENT DATE: 2020
